FAERS Safety Report 10252395 (Version 2)
Quarter: 2014Q3

REPORT INFORMATION
  Report Type: Spontaneous
  Country: JP (occurrence: JP)
  Receive Date: 20140623
  Receipt Date: 20140714
  Transmission Date: 20150326
  Serious: Yes (Hospitalization, Other)
  Sender: FDA-Public Use
  Company Number: JP-SA-2014SA076744

PATIENT
  Age: 24 Year
  Sex: Female

DRUGS (2)
  1. INSULIN [Suspect]
     Active Substance: INSULIN NOS
     Indication: SUICIDAL IDEATION
     Dosage: 1000 UNITS OR MORE COMBINED WITH LANTUS
     Route: 058
  2. LANTUS [Suspect]
     Active Substance: INSULIN GLARGINE
     Indication: SUICIDAL IDEATION
     Dosage: 1000 UNITS OR MORE COMBINED WITH AN ULTRA-RAPID-ACTING INSULIN
     Route: 058

REACTIONS (2)
  - Hypoglycaemia [Recovered/Resolved]
  - Suicide attempt [Unknown]

NARRATIVE: CASE EVENT DATE: 20140606
